FAERS Safety Report 20564858 (Version 1)
Quarter: 2022Q1

REPORT INFORMATION
  Report Type: Spontaneous
  Country: US (occurrence: US)
  Receive Date: 20220308
  Receipt Date: 20220308
  Transmission Date: 20220423
  Serious: No
  Sender: FDA-Public Use
  Company Number: US-ALLERGAN-2122170US

PATIENT
  Sex: Female

DRUGS (2)
  1. ESTRACE [Suspect]
     Active Substance: ESTRADIOL
     Indication: Urethral disorder
  2. ESTRADIOL [Concomitant]
     Active Substance: ESTRADIOL
     Indication: Urethral disorder

REACTIONS (1)
  - Off label use [Unknown]
